FAERS Safety Report 6818199-6 (Version None)
Quarter: 2010Q3

REPORT INFORMATION
  Report Type: 
  Country: None (occurrence: None)
  Receive Date: 20100706
  Receipt Date: 20040302
  Transmission Date: 20110219
  Serious: No
  Sender: FDA-Public Use
  Company Number: US-PFIZER INC-2007054995

PATIENT
  Age: 24 Year
  Sex: Female

DRUGS (3)
  1. ZITHROMAX [Suspect]
  2. PROTONIX [Concomitant]
  3. AMOXICILLIN [Concomitant]

REACTIONS (2)
  - DIARRHOEA [None]
  - INCORRECT DOSE ADMINISTERED [None]
